FAERS Safety Report 25594184 (Version 3)
Quarter: 2025Q3

REPORT INFORMATION
  Report Type: Spontaneous
  Country: US (occurrence: US)
  Receive Date: 20250723
  Receipt Date: 20250814
  Transmission Date: 20251020
  Serious: No
  Sender: SUNOVION
  Company Number: US-SMPA-2025SPA008686AA

PATIENT
  Age: 76 Year
  Sex: Female

DRUGS (2)
  1. GEMTESA [Suspect]
     Active Substance: VIBEGRON
     Indication: Hypertonic bladder
     Route: 048
  2. PREDNISONE [Concomitant]
     Active Substance: PREDNISONE

REACTIONS (19)
  - Nervousness [Unknown]
  - Fatigue [Unknown]
  - Anxiety [Unknown]
  - Depressed mood [Unknown]
  - Malaise [Unknown]
  - Back pain [Unknown]
  - Urinary incontinence [Unknown]
  - Influenza like illness [Unknown]
  - Pelvic discomfort [Unknown]
  - Pollakiuria [Unknown]
  - Bowel movement irregularity [Unknown]
  - Sciatica [Unknown]
  - Abdominal pain lower [Unknown]
  - Abdominal discomfort [Unknown]
  - Drug hypersensitivity [Unknown]
  - Nausea [Unknown]
  - Hot flush [Unknown]
  - Constipation [Unknown]
  - Drug ineffective [Unknown]
